FAERS Safety Report 8160050-9 (Version None)
Quarter: 2012Q1

REPORT INFORMATION
  Report Type: 
  Country: None (occurrence: None)
  Receive Date: 20120223
  Receipt Date: 20120221
  Transmission Date: 20120608
  Serious: Yes (Hospitalization)
  Sender: FDA-Public Use
  Company Number: PL-GLAXOSMITHKLINE-Z0013895B

PATIENT
  Sex: Female
  Weight: 60 kg

DRUGS (5)
  1. METAMIZOL [Concomitant]
     Dosage: 500MG THREE TIMES PER DAY
     Route: 048
     Dates: start: 20120206, end: 20120206
  2. METAMIZOL [Concomitant]
     Indication: PYREXIA
     Dosage: 500MG PER DAY
     Route: 048
     Dates: start: 20120204, end: 20120205
  3. CLODRONATE DISODIUM [Concomitant]
     Indication: OSTEOPOROSIS PROPHYLAXIS
     Dosage: 1600MG PER DAY
     Route: 048
     Dates: start: 20120128, end: 20120206
  4. LAPATINIB [Suspect]
     Indication: BREAST CANCER METASTATIC
     Dosage: 1250MG PER DAY
     Route: 048
     Dates: start: 20110830
  5. VINORELBINE TARTRATE [Suspect]
     Indication: BREAST CANCER METASTATIC
     Dosage: 20MGM2 CYCLIC
     Route: 042
     Dates: start: 20110830

REACTIONS (2)
  - PAIN [None]
  - PYREXIA [None]
